FAERS Safety Report 7512521-3 (Version None)
Quarter: 2011Q2

REPORT INFORMATION
  Report Type: 
  Country: None (occurrence: None)
  Receive Date: 20110531
  Receipt Date: 20110520
  Transmission Date: 20111010
  Serious: No
  Sender: FDA-Public Use
  Company Number: EC-ROCHE-778510

PATIENT
  Sex: Female
  Weight: 64.4 kg

DRUGS (1)
  1. ISOTRETINOIN [Suspect]
     Indication: ACNE CONGLOBATA
     Dosage: FREQUENCY:EVERY DAY
     Route: 048
     Dates: start: 20100211, end: 20101223

REACTIONS (2)
  - NO ADVERSE EVENT [None]
  - PREGNANCY [None]
